FAERS Safety Report 25995031 (Version 2)
Quarter: 2025Q4

REPORT INFORMATION
  Report Type: Report from Study
  Country: JP (occurrence: JP)
  Receive Date: 20251104
  Receipt Date: 20251215
  Transmission Date: 20260118
  Serious: Yes (Other)
  Sender: JOHNSON AND JOHNSON
  Company Number: JP-JNJFOC-20251029129

PATIENT
  Age: 6 Decade
  Sex: Female

DRUGS (3)
  1. RILPIVIRINE [Suspect]
     Active Substance: RILPIVIRINE
     Indication: HIV infection
     Route: 030
  2. VOCABRIA [Suspect]
     Active Substance: CABOTEGRAVIR SODIUM
     Indication: HIV infection
     Route: 030
  3. ROSUVASTATIN CALCIUM [Concomitant]
     Active Substance: ROSUVASTATIN CALCIUM
     Indication: Dyslipidaemia
     Dosage: DOSE UNKNOWN

REACTIONS (2)
  - Glaucoma [Not Recovered/Not Resolved]
  - Spinal osteoarthritis [Not Recovered/Not Resolved]

NARRATIVE: CASE EVENT DATE: 20230101
